FAERS Safety Report 7702934-9 (Version None)
Quarter: 2011Q3

REPORT INFORMATION
  Report Type: 
  Country: None (occurrence: None)
  Receive Date: 20110823
  Receipt Date: 20110819
  Transmission Date: 20111222
  Serious: Yes (Disabling)
  Sender: FDA-Public Use
  Company Number: PHHY2011US51126

PATIENT
  Sex: Female

DRUGS (6)
  1. LIPITOR [Concomitant]
  2. RECLAST [Suspect]
     Dosage: 5 MG, ONCE PER YEAR
     Route: 042
  3. TRAMADOL HCL [Concomitant]
  4. ENALAPRIL MALEATE [Concomitant]
  5. AMITRIPTYLINE HCL [Concomitant]
  6. METFORMIN HCL [Concomitant]

REACTIONS (1)
  - INFUSION SITE EXTRAVASATION [None]
